FAERS Safety Report 14446733 (Version 2)
Quarter: 2019Q4

REPORT INFORMATION
  Report Type: Spontaneous
  Country: CA (occurrence: CA)
  Receive Date: 20180126
  Receipt Date: 20191028
  Transmission Date: 20200122
  Serious: Yes (Hospitalization)
  Sender: FDA-Public Use
  Company Number: PHHY2018CA009211

PATIENT
  Sex: Male

DRUGS (8)
  1. DELATESTRYL [Concomitant]
     Active Substance: TESTOSTERONE ENANTHATE
     Indication: PRODUCT USED FOR UNKNOWN INDICATION
     Dosage: 100 MG, QW
     Route: 030
  2. CORTEF [Suspect]
     Active Substance: HYDROCORTISONE
     Indication: PRODUCT USED FOR UNKNOWN INDICATION
     Dosage: 20 MG, QD
     Route: 048
  3. SOMAVERT [Suspect]
     Active Substance: PEGVISOMANT
     Dosage: 20 MG, QD (5X PER WEEK) (ON WEEKDAYS)
     Route: 058
     Dates: start: 20190503, end: 2019
  4. SANDOSTATIN LAR DEPOT [Suspect]
     Active Substance: OCTREOTIDE ACETATE
     Indication: PRODUCT USED FOR UNKNOWN INDICATION
     Dosage: 20 MG, Q4W
     Route: 030
     Dates: start: 201909
  5. SOMAVERT [Suspect]
     Active Substance: PEGVISOMANT
     Indication: ACROMEGALY
     Dosage: UNK, QOD (ALTERNATING DOSE)
     Route: 058
     Dates: end: 201711
  6. TESTOSTERONE. [Suspect]
     Active Substance: TESTOSTERONE
     Indication: PRODUCT USED FOR UNKNOWN INDICATION
     Dosage: UNK
     Route: 065
  7. ASPIRIN. [Concomitant]
     Active Substance: ASPIRIN
     Indication: PRODUCT USED FOR UNKNOWN INDICATION
     Dosage: 81 MG, QD
     Route: 048
     Dates: start: 2016
  8. SOMAVERT [Suspect]
     Active Substance: PEGVISOMANT
     Dosage: 20 MG, QD (5X PER WEEK) (ON WEEKDAYS)
     Route: 058
     Dates: start: 20171212, end: 2019

REACTIONS (5)
  - Arthralgia [Unknown]
  - Syringe issue [Unknown]
  - Inappropriate schedule of product administration [Unknown]
  - Pulmonary embolism [Not Recovered/Not Resolved]
  - Injection site bruising [Unknown]

NARRATIVE: CASE EVENT DATE: 2014
